FAERS Safety Report 16892740 (Version 3)
Quarter: 2020Q1

REPORT INFORMATION
  Report Type: Spontaneous
  Country: US (occurrence: US)
  Receive Date: 20191007
  Receipt Date: 20200109
  Transmission Date: 20200409
  Serious: Yes (Other)
  Sender: FDA-Public Use
  Company Number: US-009507513-1910USA002496

PATIENT
  Age: 68 Year
  Sex: Female

DRUGS (4)
  1. PROSCAR [Suspect]
     Active Substance: FINASTERIDE
     Dosage: 50 MILLIGRAM, UNK (ROUTE OF ADMINISTRATION REPORTED AS ^LIQUID^)
     Route: 048
     Dates: start: 20190807, end: 20190814
  2. CENTRUM (MINERALS (UNSPECIFIED) (+) VITAMINS (UNSPECIFIED)) [Concomitant]
     Active Substance: MINERALS\VITAMINS
     Dosage: UNK
  3. ZYRTEC [Concomitant]
     Active Substance: CETIRIZINE HYDROCHLORIDE
     Dosage: UNK
  4. SINGULAIR [Concomitant]
     Active Substance: MONTELUKAST SODIUM
     Dosage: UNK

REACTIONS (14)
  - Gastric ulcer [Unknown]
  - Sluggishness [Recovering/Resolving]
  - Swelling [Recovering/Resolving]
  - Blood pressure increased [Unknown]
  - Gastric polyps [Unknown]
  - Gastrooesophageal reflux disease [Unknown]
  - Chest pain [Unknown]
  - Hiatus hernia [Unknown]
  - Weight increased [Unknown]
  - Product use issue [Unknown]
  - Large intestine polyp [Unknown]
  - Poisoning [Recovering/Resolving]
  - Multi-organ disorder [Recovering/Resolving]
  - Laboratory test abnormal [Unknown]

NARRATIVE: CASE EVENT DATE: 2019
